FAERS Safety Report 7513264-2 (Version None)
Quarter: 2011Q2

REPORT INFORMATION
  Report Type: 
  Country: None (occurrence: None)
  Receive Date: 20110531
  Receipt Date: 20110425
  Transmission Date: 20111010
  Serious: Yes (Hospitalization, Other)
  Sender: FDA-Public Use
  Company Number: US-BAYER-201024693NA

PATIENT
  Age: 25 Year
  Sex: Female
  Weight: 83.9 kg

DRUGS (2)
  1. YASMIN [Suspect]
     Indication: CONTRACEPTION
     Dosage: 1 DF, QD
     Route: 048
     Dates: start: 20061201, end: 20070501
  2. YAZ [Suspect]
     Indication: CONTRACEPTION
     Dosage: 1 DF, QD
     Route: 048
     Dates: start: 20070601, end: 20070701

REACTIONS (10)
  - CHEST PAIN [None]
  - POST CHOLECYSTECTOMY SYNDROME [None]
  - CHOLECYSTITIS [None]
  - PANCREATITIS ACUTE [None]
  - PULMONARY EMBOLISM [None]
  - CHOLELITHIASIS [None]
  - DYSPNOEA [None]
  - GALLBLADDER PAIN [None]
  - PANCREATITIS [None]
  - CHOLECYSTITIS CHRONIC [None]
